FAERS Safety Report 9817990 (Version 1)
Quarter: 2014Q1

REPORT INFORMATION
  Report Type: Spontaneous
  Country: US (occurrence: None)
  Receive Date: 20140110
  Receipt Date: 20140110
  Transmission Date: 20141002
  Serious: Yes (Other)
  Sender: FDA-Public Use
  Company Number: None

PATIENT
  Age: 64 Year
  Sex: Male

DRUGS (1)
  1. FENTANYL [Suspect]
     Indication: PAIN
     Dosage: APPLY 1 PATCH EVERY 72 HOURS AFTER REMOVING OLD PATCH

REACTIONS (2)
  - Withdrawal syndrome [None]
  - Product quality issue [None]
